FAERS Safety Report 10215663 (Version 1)
Quarter: 2014Q2

REPORT INFORMATION
  Report Type: Spontaneous
  Country: US (occurrence: None)
  Receive Date: 20140602
  Receipt Date: 20140602
  Transmission Date: 20141212
  Serious: Yes (Life-Threatening, Hospitalization)
  Sender: FDA-Public Use
  Company Number: None

PATIENT
  Age: 52 Year
  Sex: Male

DRUGS (3)
  1. INCIVEK [Suspect]
     Indication: HEPATITIS C
     Dosage: 375 MG ?6 TABS/DAY?PO
     Route: 048
     Dates: start: 20140423, end: 20140510
  2. RIBAVIRIN (RIBASPHERE) [Suspect]
     Indication: HEPATITIS C
     Route: 048
     Dates: start: 20140423, end: 20140510
  3. PEGASYS [Concomitant]

REACTIONS (2)
  - Renal failure [None]
  - Dialysis [None]
